FAERS Safety Report 6112282-9 (Version None)
Quarter: 2009Q1

REPORT INFORMATION
  Report Type: 
  Country: None (occurrence: None)
  Receive Date: 20090311
  Receipt Date: 20090311
  Transmission Date: 20090719
  Serious: Yes (Other)
  Sender: FDA-Public Use
  Company Number: None

PATIENT

DRUGS (1)
  1. LIDODERM [Suspect]
     Indication: BACK PAIN
     Dosage: 1 PATCH ONCE DAILY TOPICALLY
     Route: 061
     Dates: start: 20080820

REACTIONS (2)
  - CHEST PAIN [None]
  - PAIN [None]
